FAERS Safety Report 19783388 (Version 1)
Quarter: 2021Q3

REPORT INFORMATION
  Report Type: Spontaneous
  Country: US (occurrence: US)
  Receive Date: 20210902
  Receipt Date: 20210902
  Transmission Date: 20211014
  Serious: No
  Sender: FDA-Public Use
  Company Number: US-ASCEND THERAPEUTICS US, LLC-2117968

PATIENT
  Age: 36 Year
  Sex: Female
  Weight: 70.3 kg

DRUGS (4)
  1. ESTROGEL [Suspect]
     Active Substance: ESTRADIOL
  2. ESTROGEN(ESTRADIOL) [Concomitant]
     Route: 048
  3. ESTROGEL [Suspect]
     Active Substance: ESTRADIOL
     Route: 061
     Dates: start: 202105, end: 202107
  4. ESTROGEL [Suspect]
     Active Substance: ESTRADIOL
     Indication: IN VITRO FERTILISATION
     Route: 061
     Dates: start: 202105, end: 202107

REACTIONS (1)
  - Off label use [None]

NARRATIVE: CASE EVENT DATE: 202105
